FAERS Safety Report 24604268 (Version 1)
Quarter: 2024Q4

REPORT INFORMATION
  Report Type: Spontaneous
  Country: US (occurrence: US)
  Receive Date: 20241111
  Receipt Date: 20241111
  Transmission Date: 20250114
  Serious: No
  Sender: PFIZER
  Company Number: US-PFIZER INC-202400294934

PATIENT
  Age: 77 Year
  Sex: Female

DRUGS (1)
  1. IBRANCE [Suspect]
     Active Substance: PALBOCICLIB
     Indication: Breast cancer metastatic
     Dosage: 75 MG, CYCLIC (2 WEEKS ON AND 3 WEEKS OFF)
     Dates: start: 2022

REACTIONS (5)
  - White blood cell count decreased [Unknown]
  - Illness [Unknown]
  - Nasopharyngitis [Unknown]
  - Immune system disorder [Unknown]
  - Off label use [Unknown]
